FAERS Safety Report 17059303 (Version 1)
Quarter: 2019Q4

REPORT INFORMATION
  Report Type: Spontaneous
  Country: AU (occurrence: AU)
  Receive Date: 20191121
  Receipt Date: 20191121
  Transmission Date: 20200122
  Serious: Yes (Other)
  Sender: FDA-Public Use
  Company Number: AU-PFIZER INC-2019496694

PATIENT
  Age: 59 Year
  Sex: Female

DRUGS (1)
  1. XELJANZ [Suspect]
     Active Substance: TOFACITINIB CITRATE
     Indication: RHEUMATOID ARTHRITIS
     Dosage: 5 MG, 2X/DAY
     Dates: start: 20190701

REACTIONS (4)
  - Bundle branch block left [Recovered/Resolved]
  - Condition aggravated [Recovered/Resolved]
  - Infection [Recovered/Resolved]
  - Drug hypersensitivity [Recovered/Resolved]
